FAERS Safety Report 9255326 (Version 3)
Quarter: 2013Q2

REPORT INFORMATION
  Report Type: Spontaneous
  Country: US (occurrence: US)
  Receive Date: 20130425
  Receipt Date: 20130508
  Transmission Date: 20140414
  Serious: Yes (Other)
  Sender: FDA-Public Use
  Company Number: US-JNJFOC-20120913065

PATIENT
  Age: 32 Year
  Sex: Female
  Weight: 70.76 kg

DRUGS (9)
  1. REMICADE [Suspect]
     Indication: CROHN^S DISEASE
     Dosage: 8 WEEK GESTATIONAL DIABETES
     Route: 042
     Dates: start: 20120831
  2. REMICADE [Suspect]
     Indication: CROHN^S DISEASE
     Dosage: 16 WEEK GESTATIONAL DIABETES
     Route: 042
     Dates: start: 20121026
  3. REMICADE [Suspect]
     Indication: CROHN^S DISEASE
     Dosage: 31 WEEK GESTATIONAL DIABETES
     Route: 042
     Dates: start: 20130208
  4. PHILLIPS MOM [Suspect]
     Indication: CONSTIPATION
     Route: 048
  5. ZYRTEC [Suspect]
     Route: 048
  6. ZYRTEC [Suspect]
     Indication: MULTIPLE ALLERGIES
     Route: 048
  7. TYLENOL [Suspect]
     Indication: HEADACHE
     Route: 048
     Dates: start: 2012
  8. DHA (PRENATAL VITAMINS/MINERALS/OMEGA-3 FATTY ACIDS) [Concomitant]
     Indication: PREGNANCY
     Dosage: 0-40 WEEKS
     Route: 048
  9. OMEGA 3 SUPPLEMENT [Concomitant]
     Indication: MEDICAL DIET
     Route: 048

REACTIONS (2)
  - Exposure during pregnancy [Recovered/Resolved]
  - Gestational diabetes [Unknown]
